FAERS Safety Report 7543086-8 (Version None)
Quarter: 2011Q2

REPORT INFORMATION
  Report Type: 
  Country: None (occurrence: None)
  Receive Date: 20110613
  Receipt Date: 20110606
  Transmission Date: 20111010
  Serious: Yes (Hospitalization, Other)
  Sender: FDA-Public Use
  Company Number: PHHO2011CA05837

PATIENT
  Sex: Male
  Weight: 66 kg

DRUGS (27)
  1. PREDNISONE [Suspect]
     Dosage: 17.5 MG, DAILY
     Route: 048
     Dates: start: 20110328, end: 20110329
  2. CERTICAN [Suspect]
     Dosage: 0.75 MG, BID
     Route: 048
     Dates: start: 20110304, end: 20110309
  3. CERTICAN [Suspect]
     Dosage: 0.75MG AM / 1.25MG PM
     Route: 048
     Dates: start: 20110310, end: 20110310
  4. TACROLIMUS [Suspect]
     Dosage: 1MG AM, 2MG PM
     Route: 048
     Dates: start: 20110311, end: 20110311
  5. TACROLIMUS [Suspect]
     Dosage: 3 MG, BID
     Route: 048
     Dates: start: 20110411, end: 20110412
  6. SEPTRA [Suspect]
     Dosage: 160-800MG MON, WED, FRI
     Dates: start: 20110314, end: 20110406
  7. TACROLIMUS [Suspect]
     Indication: RENAL TRANSPLANT
     Dosage: 2 MG, UNK
     Route: 048
     Dates: start: 20110303
  8. TACROLIMUS [Suspect]
     Dosage: 3 M, BID
     Route: 048
     Dates: start: 20110313, end: 20110313
  9. TACROLIMUS [Suspect]
     Dosage: 2 MG, BID
     Route: 048
     Dates: start: 20110317, end: 20110409
  10. TACROLIMUS [Suspect]
     Dosage: 3.5 MG, BID
     Route: 048
     Dates: start: 20110413
  11. CERTICAN [Suspect]
     Indication: RENAL TRANSPLANT
     Dosage: 0.75 MG, UNK
     Route: 048
     Dates: start: 20110303, end: 20110303
  12. CERTICAN [Suspect]
     Dosage: 1.75 MG, ONCE/SINGLE IN THE AM
     Route: 048
     Dates: start: 20110412
  13. TACROLIMUS [Suspect]
     Dosage: 1 MG, BID
     Route: 048
     Dates: start: 20110310, end: 20110310
  14. TACROLIMUS [Suspect]
     Dosage: 2MG AM, 3MG PM
     Route: 048
     Dates: start: 20110312, end: 20110312
  15. TACROLIMUS [Suspect]
     Dosage: 2.5 MG, BID
     Route: 048
     Dates: start: 20110315, end: 20110315
  16. HEPARIN [Suspect]
  17. CERTICAN [Suspect]
     Dosage: 1.25MG AM, 1.75MG PM
     Route: 048
     Dates: start: 20110404, end: 20110404
  18. PREDNISONE [Suspect]
     Dosage: 20 MG, DAILY
     Dates: start: 20110326, end: 20110327
  19. PREDNISONE [Suspect]
     Dosage: 30 MG, DAILY
     Dates: start: 20110411
  20. CERTICAN [Suspect]
     Dosage: 1.25 MG, BID
     Route: 048
     Dates: start: 20110311, end: 20110403
  21. TACROLIMUS [Suspect]
     Dosage: 2.5MG AM, 1MG PM
     Route: 048
     Dates: start: 20110316, end: 20110316
  22. TACROLIMUS [Suspect]
     Dosage: 2MG AM, 3MG PM
     Route: 048
     Dates: start: 20110410, end: 20110410
  23. PREDNISONE [Suspect]
     Indication: RENAL TRANSPLANT
     Dosage: 22.5 MG, DAILY
     Route: 048
     Dates: start: 20110318, end: 20110325
  24. PREDNISONE [Suspect]
     Dosage: 15 MG, DAILY
     Route: 048
     Dates: start: 20110330, end: 20110408
  25. CERTICAN [Suspect]
     Dosage: 1.75 MG, BID
     Route: 048
     Dates: start: 20110405, end: 20110411
  26. TACROLIMUS [Suspect]
     Dosage: 3MG AM, 2MG PM
     Route: 048
     Dates: start: 20110314, end: 20110314
  27. PREDNISONE [Suspect]
     Dosage: 25 MG, DAILY
     Route: 048
     Dates: start: 20110409, end: 20110410

REACTIONS (5)
  - DRUG INEFFECTIVE [None]
  - URETERIC STENOSIS [None]
  - BACTERIAL PYELONEPHRITIS [None]
  - DEEP VEIN THROMBOSIS [None]
  - KIDNEY TRANSPLANT REJECTION [None]
